FAERS Safety Report 6095920-9 (Version None)
Quarter: 2009Q1

REPORT INFORMATION
  Report Type: 
  Country: None (occurrence: None)
  Receive Date: 20090227
  Receipt Date: 20080724
  Transmission Date: 20090719
  Serious: No
  Sender: FDA-Public Use
  Company Number: A0737963A

PATIENT
  Age: 28 Year
  Sex: Female
  Weight: 43.6 kg

DRUGS (3)
  1. LAMICTAL [Suspect]
     Indication: EPILEPSY
     Dosage: 25MG PER DAY
     Route: 048
  2. ACTONEL [Concomitant]
     Dosage: 35MG WEEKLY
     Route: 048
  3. CARBAMAZEPINE [Concomitant]
     Route: 065

REACTIONS (1)
  - RASH [None]
